FAERS Safety Report 23639801 (Version 1)
Quarter: 2024Q1

REPORT INFORMATION
  Report Type: Spontaneous
  Country: IT (occurrence: IT)
  Receive Date: 20240316
  Receipt Date: 20240316
  Transmission Date: 20240410
  Serious: Yes (Hospitalization)
  Sender: FDA-Public Use
  Company Number: None

PATIENT
  Age: 46 Year
  Sex: Male

DRUGS (1)
  1. IBUPROFEN [Suspect]
     Active Substance: IBUPROFEN
     Indication: Inflammation
     Dosage: TIME INTERVAL: TOTAL: 1 TABLET TOTAL 400 MG, IBUPROFENE
     Route: 048
     Dates: start: 20240101, end: 20240101

REACTIONS (2)
  - Tongue oedema [Recovered/Resolved]
  - Oedema genital [Recovered/Resolved]

NARRATIVE: CASE EVENT DATE: 20240101
